FAERS Safety Report 5465304-2 (Version None)
Quarter: 2007Q3

REPORT INFORMATION
  Report Type: 
  Country: None (occurrence: None)
  Receive Date: 20070924
  Receipt Date: 20070917
  Transmission Date: 20080115
  Serious: Yes (Death)
  Sender: FDA-Public Use
  Company Number: HQWYE188017SEP07

PATIENT

DRUGS (1)
  1. CORDARONE [Suspect]
     Dosage: ^HIGH DOSE^

REACTIONS (1)
  - COLONIC PSEUDO-OBSTRUCTION [None]
